FAERS Safety Report 7395620 (Version 5)
Quarter: 2012Q4

REPORT INFORMATION
  Report Type: Report from Study
  Country: DK (occurrence: DK)
  Receive Date: 20100521
  Receipt Date: 20120927
  Transmission Date: 20130627
  Serious: Yes (Hospitalization)
  Sender: FDA-Public Use
  Company Number: DK-JNJFOC-20100402293

PATIENT
  Sex: Male
  Weight: 87.7 kg

DRUGS (7)
  1. REMICADE [Suspect]
     Indication: COLITIS ULCERATIVE
     Route: 042
     Dates: start: 20100107, end: 20100107
  2. AZATHIOPRINE [Concomitant]
     Indication: COLITIS ULCERATIVE
     Route: 048
     Dates: start: 20090312
  3. PREDNISOLONE [Concomitant]
     Indication: COLITIS ULCERATIVE
     Route: 048
     Dates: start: 20100118, end: 20100219
  4. MESALAZINE [Concomitant]
     Indication: COLITIS ULCERATIVE
     Route: 048
     Dates: start: 20091203, end: 20100206
  5. UNIKALK BASIC [Concomitant]
     Indication: COLITIS ULCERATIVE
     Route: 048
     Dates: start: 20090312, end: 20100125
  6. ADALIMUMAB [Concomitant]
     Indication: COLITIS ULCERATIVE
     Dosage: reported indication was antibodies and allergic reaction against infliximab
     Route: 058
     Dates: start: 20100126, end: 20100206
  7. UNSPECIFED MEDICATIONS [Concomitant]
     Indication: SLEEP DISORDER THERAPY
     Route: 048
     Dates: start: 20100203, end: 20100219

REACTIONS (3)
  - Colitis ulcerative [Recovered/Resolved]
  - Pyrexia [Recovered/Resolved]
  - Abdominal abscess [Recovering/Resolving]
